FAERS Safety Report 4637460-7 (Version None)
Quarter: 2005Q2

REPORT INFORMATION
  Report Type: 
  Country: None (occurrence: None)
  Receive Date: 20050418
  Receipt Date: 20050112
  Transmission Date: 20051028
  Serious: Yes (Other)
  Sender: FDA-Public Use
  Company Number: US-AMGEN-KDL111401

PATIENT
  Sex: Female

DRUGS (1)
  1. ENBREL [Suspect]
     Indication: RHEUMATOID ARTHRITIS
     Route: 058
     Dates: start: 20040915

REACTIONS (3)
  - CONDITION AGGRAVATED [None]
  - NECROTISING GRANULOMATOUS LYMPHADENITIS [None]
  - RHEUMATOID ARTHRITIS [None]
